FAERS Safety Report 14404688 (Version 2)
Quarter: 2018Q1

REPORT INFORMATION
  Report Type: Report from Study
  Country: None (occurrence: US)
  Receive Date: 20180118
  Receipt Date: 20180226
  Transmission Date: 20180509
  Serious: Yes (Other)
  Sender: FDA-Public Use
  Company Number: US-ABBVIE-17K-163-2127515-00

PATIENT
  Age: 12 Year
  Sex: Male

DRUGS (4)
  1. HUMIRA [Suspect]
     Active Substance: ADALIMUMAB
     Indication: CROHN^S DISEASE
     Dosage: DAY 1
     Route: 058
     Dates: start: 20170921, end: 20170921
  2. HUMIRA [Suspect]
     Active Substance: ADALIMUMAB
     Indication: JUVENILE IDIOPATHIC ARTHRITIS
     Dosage: DAY 15
     Route: 058
     Dates: start: 20171005, end: 20171005
  3. HUMIRA [Suspect]
     Active Substance: ADALIMUMAB
     Dosage: DAY 29
     Route: 058
     Dates: start: 20171019, end: 2017
  4. HUMIRA [Suspect]
     Active Substance: ADALIMUMAB
     Route: 058

REACTIONS (19)
  - Diarrhoea haemorrhagic [Not Recovered/Not Resolved]
  - Intestinal anastomosis complication [Unknown]
  - Insomnia [Not Recovered/Not Resolved]
  - Abdominal pain [Unknown]
  - Anxiety [Not Recovered/Not Resolved]
  - Drug ineffective [Unknown]
  - Stoma site discharge [Unknown]
  - Frequent bowel movements [Recovering/Resolving]
  - Abdominal discomfort [Unknown]
  - Vomiting [Recovered/Resolved]
  - Fatigue [Unknown]
  - Loss of personal independence in daily activities [Unknown]
  - Depressed mood [Not Recovered/Not Resolved]
  - Abdominal pain upper [Recovering/Resolving]
  - Gastric infection [Recovered/Resolved]
  - Malaise [Unknown]
  - Decreased appetite [Recovering/Resolving]
  - Post procedural fever [Recovered/Resolved]
  - Diarrhoea [Recovering/Resolving]

NARRATIVE: CASE EVENT DATE: 2017
